FAERS Safety Report 17798143 (Version 2)
Quarter: 2020Q3

REPORT INFORMATION
  Report Type: Spontaneous
  Country: AU (occurrence: AU)
  Receive Date: 20200518
  Receipt Date: 20200702
  Transmission Date: 20201102
  Serious: Yes (Other)
  Sender: FDA-Public Use
  Company Number: AU-BEH-2020117202

PATIENT
  Sex: Male

DRUGS (2)
  1. HIZENTRA [Suspect]
     Active Substance: HUMAN IMMUNOGLOBULIN G
     Dosage: 9 GRAM, QW
     Route: 065
  2. VENETOCLAX. [Interacting]
     Active Substance: VENETOCLAX

REACTIONS (6)
  - Occult blood positive [Unknown]
  - Drug interaction [Unknown]
  - Gastrointestinal haemorrhage [Unknown]
  - Frequent bowel movements [Unknown]
  - Gastrointestinal pain [Unknown]
  - Gastrointestinal carcinoma [Unknown]
